FAERS Safety Report 9611089 (Version 1)
Quarter: 2013Q4

REPORT INFORMATION
  Report Type: Other
  Country: US (occurrence: US)
  Receive Date: 20131009
  Receipt Date: 20131009
  Transmission Date: 20140711
  Serious: Yes (Hospitalization, Other)
  Sender: FDA-Public Use
  Company Number: US-SAVIENT-2013S1000085

PATIENT
  Age: 30 Year
  Sex: Male

DRUGS (6)
  1. PEGLOTICASE [Suspect]
     Indication: GOUTY TOPHUS
  2. PEGLOTICASE [Suspect]
     Indication: GOUT
  3. COLCHICINE [Concomitant]
     Indication: GOUT
  4. ALLOPURINOL [Concomitant]
     Indication: GOUT
  5. PROBENECID [Concomitant]
     Indication: GOUT
  6. FEBUXOSTAT [Concomitant]
     Indication: GOUT

REACTIONS (2)
  - Infusion related reaction [Recovered/Resolved]
  - Therapeutic response decreased [Not Recovered/Not Resolved]
